FAERS Safety Report 4601649-3 (Version None)
Quarter: 2005Q1

REPORT INFORMATION
  Report Type: 
  Country: None (occurrence: None)
  Receive Date: 20050308
  Receipt Date: 20050304
  Transmission Date: 20050727
  Serious: Yes (Hospitalization)
  Sender: FDA-Public Use
  Company Number: DE-GLAXOSMITHKLINE-D0046073A

PATIENT
  Sex: Female

DRUGS (3)
  1. QUILONUM [Suspect]
     Route: 065
  2. QUILONUM RETARD [Suspect]
     Route: 065
  3. ACETAMINOPHEN [Suspect]
     Route: 048

REACTIONS (4)
  - DEPRESSED LEVEL OF CONSCIOUSNESS [None]
  - DRUG LEVEL INCREASED [None]
  - OVERDOSE [None]
  - THERAPEUTIC AGENT TOXICITY [None]
